FAERS Safety Report 14008730 (Version 5)
Quarter: 2018Q1

REPORT INFORMATION
  Report Type: Spontaneous
  Country: ID (occurrence: ID)
  Receive Date: 20170925
  Receipt Date: 20180103
  Transmission Date: 20180508
  Serious: Yes (Other)
  Sender: FDA-Public Use
  Company Number: ID-ROCHE-1997099

PATIENT

DRUGS (3)
  1. PEGASYS [Suspect]
     Active Substance: PEGINTERFERON ALFA-2A
     Indication: HEPATITIS B
     Route: 065
  2. PEGINTRON [Concomitant]
     Active Substance: PEGINTERFERON ALFA-2B
  3. PEGASYS [Suspect]
     Active Substance: PEGINTERFERON ALFA-2A
     Indication: HEPATITIS C

REACTIONS (2)
  - Drug ineffective [Unknown]
  - Disease progression [Recovered/Resolved]
